FAERS Safety Report 4268823-X (Version None)
Quarter: 2004Q1

REPORT INFORMATION
  Report Type: 
  Country: None (occurrence: None)
  Receive Date: 20040109
  Receipt Date: 20040102
  Transmission Date: 20041129
  Serious: Yes (Other)
  Sender: FDA-Public Use
  Company Number: FI-JNJFOC-20040100034

PATIENT
  Age: 22 Year
  Sex: Female

DRUGS (4)
  1. RISPERDAL [Suspect]
     Indication: MANIA
     Dosage: SEE IMAGE
     Route: 048
     Dates: start: 20031001, end: 20031003
  2. RISPERDAL [Suspect]
     Indication: MANIA
     Dosage: SEE IMAGE
     Route: 048
     Dates: start: 20031004, end: 20031029
  3. RISPERDAL [Suspect]
     Indication: MANIA
     Dosage: SEE IMAGE
     Route: 048
     Dates: start: 20031013, end: 20031029
  4. AKINETON (TABLETS) BIPERIDEN HYDROCHLORIDE [Concomitant]

REACTIONS (2)
  - MEDICATION ERROR [None]
  - NEUROLEPTIC MALIGNANT SYNDROME [None]
